FAERS Safety Report 5389304-6 (Version None)
Quarter: 2007Q3

REPORT INFORMATION
  Report Type: 
  Country: None (occurrence: None)
  Receive Date: 20070712
  Receipt Date: 20070626
  Transmission Date: 20080115
  Serious: Yes (Death)
  Sender: FDA-Public Use
  Company Number: IMP_03012_2007

PATIENT
  Age: 47 Year
  Sex: Female

DRUGS (8)
  1. OXYCODONE (IMPAX) [Suspect]
  2. PHENTERMINE [Suspect]
  3. PAXIL [Suspect]
  4. ACETAMINOPHEN [Suspect]
  5. AMITRIPTYLINE HYDROCHLORIDE [Suspect]
  6. ALPRAZOLAM [Suspect]
  7. FLURAZEPAM HYDROCHLORIDE [Suspect]
  8. NORTRIPTYLINE 10 MG (MYLAN PHARMACEUTICALS, INC.) [Suspect]

REACTIONS (2)
  - COMPLETED SUICIDE [None]
  - OVERDOSE [None]
